FAERS Safety Report 9632142 (Version 5)
Quarter: 2014Q1

REPORT INFORMATION
  Report Type: Report from Study
  Country: DE (occurrence: DE)
  Receive Date: 20131018
  Receipt Date: 20140312
  Transmission Date: 20141002
  Serious: Yes (Life-Threatening, Hospitalization, Other)
  Sender: FDA-Public Use
  Company Number: DE-CELGENEUS-062-21880-13092282

PATIENT
  Age: 48 Year
  Sex: Male

DRUGS (9)
  1. REVLIMID [Suspect]
     Indication: PLASMA CELL MYELOMA
     Route: 048
     Dates: start: 20130909
  2. ADRIAMYCIN [Suspect]
     Indication: PLASMA CELL MYELOMA
     Route: 041
     Dates: start: 20130909, end: 20131008
  3. ADRIAMYCIN [Suspect]
     Route: 041
     Dates: start: 20131017
  4. DEXAMETHASONE [Suspect]
     Indication: PLASMA CELL MYELOMA
     Route: 048
     Dates: start: 20130909, end: 20131008
  5. DEXAMETHASONE [Suspect]
     Route: 048
     Dates: start: 20131017
  6. PEGFILGRASTIM [Suspect]
     Indication: PLASMA CELL MYELOMA
     Route: 058
     Dates: start: 20130913
  7. PYRAZINAMIDE [Concomitant]
     Indication: BONE TUBERCULOSIS
     Route: 065
     Dates: start: 20130913, end: 20131002
  8. NEULASTA [Concomitant]
     Indication: INFECTION PROPHYLAXIS
     Route: 065
  9. FRUSEMIDE [Concomitant]
     Indication: FLUID OVERLOAD
     Route: 041
     Dates: start: 20131008, end: 20131010

REACTIONS (2)
  - Sepsis [Recovered/Resolved]
  - Mycobacterium test positive [Recovered/Resolved]
